FAERS Safety Report 5766142-3 (Version None)
Quarter: 2008Q2

REPORT INFORMATION
  Report Type: 
  Country: None (occurrence: None)
  Receive Date: 20080611
  Receipt Date: 20080603
  Transmission Date: 20081010
  Serious: Yes (Other)
  Sender: FDA-Public Use
  Company Number: AU-ABBOTT-08P-008-0454962-00

PATIENT
  Sex: Female

DRUGS (11)
  1. HUMIRA [Suspect]
     Indication: RHEUMATOID ARTHRITIS
     Route: 050
     Dates: start: 20080201, end: 20080408
  2. NIFEDIPINE [Concomitant]
     Indication: DRUG USE FOR UNKNOWN INDICATION
  3. ASPIRIN [Concomitant]
     Indication: DRUG USE FOR UNKNOWN INDICATION
  4. IBUROFEN [Concomitant]
     Indication: DRUG USE FOR UNKNOWN INDICATION
  5. AMITRIPTYLINE HYDROCHLORIDE [Concomitant]
     Indication: DRUG USE FOR UNKNOWN INDICATION
  6. FOLIC ACID [Concomitant]
     Indication: DRUG USE FOR UNKNOWN INDICATION
  7. GRISEOFULVIN [Concomitant]
     Indication: DRUG USE FOR UNKNOWN INDICATION
  8. METHOTREXATE [Concomitant]
     Indication: DRUG USE FOR UNKNOWN INDICATION
  9. CELESTONA BIFAS [Concomitant]
     Indication: DRUG USE FOR UNKNOWN INDICATION
  10. PROVELLA-14 [Concomitant]
     Indication: DRUG USE FOR UNKNOWN INDICATION
  11. PANTOPRAZOLE SODIUM [Concomitant]
     Indication: DRUG USE FOR UNKNOWN INDICATION

REACTIONS (4)
  - ABDOMINAL DISTENSION [None]
  - ALOPECIA [None]
  - DEPRESSION [None]
  - WEIGHT INCREASED [None]
